FAERS Safety Report 8166464-5 (Version None)
Quarter: 2012Q1

REPORT INFORMATION
  Report Type: 
  Country: None (occurrence: None)
  Receive Date: 20120227
  Receipt Date: 20110825
  Transmission Date: 20120608
  Serious: Yes (Other)
  Sender: FDA-Public Use
  Company Number: US-MYLANLABS-2011S1017763

PATIENT
  Sex: Female

DRUGS (2)
  1. AMNESTEEM [Suspect]
     Route: 048
  2. AMNESTEEM [Suspect]
     Indication: ACNE
     Route: 048

REACTIONS (1)
  - CONVULSION [None]
